FAERS Safety Report 5582657-5 (Version None)
Quarter: 2008Q1

REPORT INFORMATION
  Report Type: 
  Country: None (occurrence: None)
  Receive Date: 20080107
  Receipt Date: 20080102
  Transmission Date: 20080703
  Serious: Yes (Death)
  Sender: FDA-Public Use
  Company Number: PHEH2008US00450

PATIENT
  Age: 69 Year
  Sex: Male

DRUGS (1)
  1. GLEEVEC [Suspect]
     Dosage: 400MG, QD
     Route: 048
     Dates: start: 20070201, end: 20070701

REACTIONS (1)
  - DEATH [None]
